FAERS Safety Report 7679708-0 (Version None)
Quarter: 2011Q3

REPORT INFORMATION
  Report Type: 
  Country: None (occurrence: None)
  Receive Date: 20110809
  Receipt Date: 20110803
  Transmission Date: 20111222
  Serious: Yes (Hospitalization)
  Sender: FDA-Public Use
  Company Number: LTI2011A00224

PATIENT
  Age: 59 Year
  Sex: Male

DRUGS (8)
  1. KENZEN 8 MG(CANDESARTAN CILEXETIL) [Concomitant]
  2. ATORVASTATIN CALCIUM [Concomitant]
  3. ACTOS [Suspect]
     Indication: TYPE 2 DIABETES MELLITUS
     Dosage: 30 MG (30 MG, 1 IN 1 D) ORAL
     Route: 048
     Dates: start: 20050630, end: 20051101
  4. STAGID(METFORMIN EMBONATE) [Concomitant]
  5. NEBIVOLOL HCL [Concomitant]
  6. COKENZEN 16/12.5(CANDESARTAN CILEXETIL, HYDROCHLOROTHIAZIDE) [Concomitant]
  7. OMEPRAZOLE [Concomitant]
  8. SINTROM [Concomitant]

REACTIONS (1)
  - BLADDER CANCER [None]
